FAERS Safety Report 10232744 (Version 4)
Quarter: 2016Q2

REPORT INFORMATION
  Report Type: Spontaneous
  Country: US (occurrence: US)
  Receive Date: 20140612
  Receipt Date: 20160530
  Transmission Date: 20160815
  Serious: Yes (Other)
  Sender: FDA-Public Use
  Company Number: US-PFIZER INC-2014155677

PATIENT
  Age: 74 Year
  Sex: Female

DRUGS (16)
  1. MYRBETRIQ [Concomitant]
     Active Substance: MIRABEGRON
     Indication: HYPERTONIC BLADDER
     Dosage: 50 MG, DAILY
     Dates: start: 20130925
  2. LYRICA [Suspect]
     Active Substance: PREGABALIN
     Dosage: 50 MG, 3X/DAY
     Route: 048
     Dates: start: 20160202
  3. ASPIRIN (E.C.) [Concomitant]
     Active Substance: ASPIRIN
     Dosage: 81 MG, 1X/DAY
     Route: 048
  4. OXYTROL FOR WOMEN [Concomitant]
     Active Substance: OXYBUTYNIN
     Dosage: UNK
     Route: 062
  5. PRAVACHOL [Concomitant]
     Active Substance: PRAVASTATIN SODIUM
     Dosage: 40 MG, 1X/DAY
     Route: 048
     Dates: start: 20150218
  6. VESICARE [Concomitant]
     Active Substance: SOLIFENACIN SUCCINATE
     Dosage: 10 MG, 1X/DAY
     Route: 048
     Dates: start: 20151104
  7. LYRICA [Suspect]
     Active Substance: PREGABALIN
     Dosage: 50 MG, 3X/DAY
  8. FINACEA [Concomitant]
     Active Substance: AZELAIC ACID
     Dosage: 15 %, DAILY
     Route: 061
     Dates: start: 20150601
  9. DOVONEX [Concomitant]
     Active Substance: CALCIPOTRIENE
     Dosage: 0.005 %, (AS NEEDED)
     Route: 061
  10. LYRICA [Suspect]
     Active Substance: PREGABALIN
     Dosage: 50 MG, 3X/DAY
     Route: 048
     Dates: start: 20150721
  11. LORAZEPAM. [Concomitant]
     Active Substance: LORAZEPAM
     Indication: ANXIETY
     Dosage: 1 MG, AS NEEDED
     Dates: start: 2010
  12. CODEINE SULPHATE [Concomitant]
     Active Substance: CODEINE SULFATE
     Dosage: UNK
  13. MYRBETRIQ [Concomitant]
     Active Substance: MIRABEGRON
     Dosage: 50 MG, 1X/DAY
     Route: 048
     Dates: start: 20160106
  14. ALEVE [Concomitant]
     Active Substance: NAPROXEN SODIUM
     Dosage: TAKE 2 TABLETS BY MOUTH DAILY AT BEDTIME
     Route: 048
  15. PROBIOTIC /06395501/ [Concomitant]
     Active Substance: BIFIDOBACTERIUM ANIMALIS SUBSP. LACTIS
     Dosage: UNK, 1X/DAY
     Route: 048
  16. PRAVASTATIN [Concomitant]
     Active Substance: PRAVASTATIN\PRAVASTATIN SODIUM
     Indication: BLOOD CHOLESTEROL INCREASED
     Dosage: 40 MG, DAILY
     Dates: start: 2010

REACTIONS (2)
  - Intestinal obstruction [Recovering/Resolving]
  - Large intestinal obstruction [Unknown]
